FAERS Safety Report 7032195-8 (Version None)
Quarter: 2010Q4

REPORT INFORMATION
  Report Type: 
  Country: None (occurrence: None)
  Receive Date: 20101007
  Receipt Date: 20100827
  Transmission Date: 20110411
  Serious: Yes (Death, Hospitalization)
  Sender: FDA-Public Use
  Company Number: TW-BRISTOL-MYERS SQUIBB COMPANY-14979082

PATIENT
  Age: 60 Year
  Sex: Female
  Weight: 63 kg

DRUGS (4)
  1. CETUXIMAB [Suspect]
     Indication: COLORECTAL CANCER METASTATIC
     Dosage: 5MG/ML MOST RECENT INF BEFORE THE EVENT ON 05FEB10 NO. OF INF:7
     Route: 042
     Dates: start: 20091103, end: 20100205
  2. OXALIPLATIN [Suspect]
     Indication: COLORECTAL CANCER METASTATIC
     Dosage: MOST RECENT INF BEFORE THE EVENT ON 05FEB10 NO. OF INF:7
     Route: 042
     Dates: start: 20091103
  3. FLUOROURACIL [Suspect]
     Indication: COLORECTAL CANCER METASTATIC
     Dosage: 400MG/M2 BOLUS,2400MG/M2 46HRS INFUSION MOST RECENT INF BEFORE THE EVENT ON 05FEB10 NO. OF INF:7
     Route: 042
     Dates: start: 20091103, end: 20100205
  4. FOLINIC ACID [Suspect]
     Indication: COLORECTAL CANCER METASTATIC
     Dosage: MOST RECENT INF BEFORE THE EVENT ON 05FEB10 NO. OF INF:7
     Route: 042
     Dates: start: 20091103, end: 20100205

REACTIONS (1)
  - PNEUMONIA [None]
